FAERS Safety Report 9412077 (Version 1)
Quarter: 2013Q2

REPORT INFORMATION
  Report Type: Spontaneous
  Country: AU (occurrence: None)
  Receive Date: 20130404
  Receipt Date: 20130404
  Transmission Date: 20140414
  Serious: No
  Sender: FDA-Public Use
  Company Number: 2013SA015224

PATIENT
  Age: 67 Year
  Sex: Female

DRUGS (7)
  1. LANTUS (INSULIN GLARGINE) [Suspect]
     Indication: BLOOD GLUCOSE INCREASED
     Dosage: 30UNITS AT BEDTIME SUBCUTANEOUS
     Route: 058
     Dates: start: 20130115, end: 20130221
  2. AVANZA [Concomitant]
  3. AVAPRO [Concomitant]
  4. COVERAM [Concomitant]
  5. JANUMET [Concomitant]
  6. LIPIDIL [Concomitant]
  7. LIVIAL [Concomitant]

REACTIONS (3)
  - Nausea [None]
  - Blood glucose increased [None]
  - Drug hypersensitivity [None]
